FAERS Safety Report 11880574 (Version 2)
Quarter: 2016Q1

REPORT INFORMATION
  Report Type: Spontaneous
  Country: US (occurrence: US)
  Receive Date: 20151230
  Receipt Date: 20160224
  Transmission Date: 20160526
  Serious: No
  Sender: FDA-Public Use
  Company Number: US-GLAXOSMITHKLINE-US2015170572

PATIENT
  Age: 49 Year
  Sex: Male

DRUGS (10)
  1. LEVEMIR [Concomitant]
     Active Substance: INSULIN DETEMIR
  2. WELCHOL [Concomitant]
     Active Substance: COLESEVELAM HYDROCHLORIDE
  3. CRESTOR [Concomitant]
     Active Substance: ROSUVASTATIN CALCIUM
  4. FOSINOPRIL [Concomitant]
     Active Substance: FOSINOPRIL
  5. NOVOLOG [Concomitant]
     Active Substance: INSULIN ASPART
  6. METFORMIN [Concomitant]
     Active Substance: METFORMIN HYDROCHLORIDE
  7. COREG [Concomitant]
     Active Substance: CARVEDILOL
     Indication: PRODUCT USED FOR UNKNOWN INDICATION
  8. ASPIRIN. [Concomitant]
     Active Substance: ASPIRIN
     Dosage: 81 MG, UNK
  9. TANZEUM [Suspect]
     Active Substance: ALBIGLUTIDE
     Indication: DIABETES MELLITUS
     Dosage: 30 MG, WE
     Dates: start: 201506
  10. OXYCODONE [Concomitant]
     Active Substance: OXYCODONE

REACTIONS (5)
  - Device leakage [Unknown]
  - Product quality issue [Unknown]
  - Decreased appetite [Not Recovered/Not Resolved]
  - Device use error [Unknown]
  - Weight decreased [Not Recovered/Not Resolved]

NARRATIVE: CASE EVENT DATE: 201508
